FAERS Safety Report 25338728 (Version 4)
Quarter: 2025Q2

REPORT INFORMATION
  Report Type: Spontaneous
  Country: US (occurrence: US)
  Receive Date: 20250520
  Receipt Date: 20250627
  Transmission Date: 20250717
  Serious: Yes (Other)
  Sender: MALLINCKRODT
  Company Number: US-MALLINCKRODT-MNK202502868

PATIENT
  Sex: Female

DRUGS (2)
  1. CORTICOTROPIN [Suspect]
     Active Substance: CORTICOTROPIN
     Indication: Rheumatoid arthritis
     Route: 058
     Dates: start: 20250326, end: 20250605
  2. HUMIRA [Concomitant]
     Active Substance: ADALIMUMAB

REACTIONS (8)
  - Neuropathy peripheral [Unknown]
  - Urinary tract infection [Not Recovered/Not Resolved]
  - Sciatica [Unknown]
  - Limb discomfort [Unknown]
  - Hypoaesthesia [Unknown]
  - Illness [Unknown]
  - Feeling abnormal [Unknown]
  - Swelling [Unknown]

NARRATIVE: CASE EVENT DATE: 20250101
